FAERS Safety Report 7149490-4 (Version None)
Quarter: 2010Q4

REPORT INFORMATION
  Report Type: 
  Country: None (occurrence: None)
  Receive Date: 20101209
  Receipt Date: 20101124
  Transmission Date: 20110411
  Serious: Yes (Other)
  Sender: FDA-Public Use
  Company Number: US-SANOFI-AVENTIS-2010SA072386

PATIENT
  Age: 68 Year
  Sex: Female

DRUGS (8)
  1. PLAVIX [Suspect]
     Route: 048
     Dates: start: 20040101
  2. PLAVIX [Suspect]
     Indication: ANEURYSM
     Route: 048
     Dates: start: 20040101
  3. LIPITOR [Concomitant]
  4. METOPROLOL [Concomitant]
  5. OMEPRAZOLE [Concomitant]
  6. SYNTHROID [Concomitant]
  7. CALCIUM [Concomitant]
  8. VITAMINS [Concomitant]

REACTIONS (1)
  - THYROID CANCER [None]
